FAERS Safety Report 14088397 (Version 1)
Quarter: 2017Q4

REPORT INFORMATION
  Report Type: Spontaneous
  Country: PL (occurrence: PL)
  Receive Date: 20171013
  Receipt Date: 20171013
  Transmission Date: 20180321
  Serious: Yes (Hospitalization, Other)
  Sender: FDA-Public Use
  Company Number: PL-ASTRAZENECA-2017SF02946

PATIENT
  Age: 50 Year
  Sex: Female

DRUGS (10)
  1. XIGDUO XR [Suspect]
     Active Substance: DAPAGLIFLOZIN PROPANEDIOL\METFORMIN HYDROCHLORIDE
     Dosage: 5/1000 MG, UNKNOWN
     Route: 048
  2. XIGDUO XR [Suspect]
     Active Substance: DAPAGLIFLOZIN PROPANEDIOL\METFORMIN HYDROCHLORIDE
     Dosage: 5/1000 MG, UNKNOWN
     Route: 048
  3. XIGDUO XR [Suspect]
     Active Substance: DAPAGLIFLOZIN PROPANEDIOL\METFORMIN HYDROCHLORIDE
     Dosage: 5/1000 MG, UNKNOWN BEFORE BREAKFAST AND AFTER DINNER
     Route: 048
  4. ROSWERA [Concomitant]
     Active Substance: ROSUVASTATIN
     Indication: HYPERLIPIDAEMIA
     Dosage: 30
  5. DILATREND [Concomitant]
     Active Substance: CARVEDILOL
     Indication: CARDIAC FAILURE
     Dosage: 25 2X DAILY
  6. METFORMIN [Concomitant]
     Active Substance: METFORMIN HYDROCHLORIDE
     Dosage: AFTER DINNER
  7. TRUSOPT [Concomitant]
     Active Substance: DORZOLAMIDE HYDROCHLORIDE
     Indication: GLAUCOMA
     Dosage: DROPS 3X DAILY
  8. FORXIGA [Suspect]
     Active Substance: DAPAGLIFLOZIN
     Dosage: AT 10 AM
     Route: 048
  9. BYDUREON [Suspect]
     Active Substance: EXENATIDE
     Route: 065
     Dates: start: 20160120
  10. LANTUS [Concomitant]
     Active Substance: INSULIN GLARGINE

REACTIONS (9)
  - Peripheral artery occlusion [Unknown]
  - Decreased appetite [Unknown]
  - Renal hypoplasia [Unknown]
  - Off label use [Unknown]
  - Renal failure [Unknown]
  - Drug dose omission [Unknown]
  - Cholelithiasis [Unknown]
  - Product use issue [Unknown]
  - Weight increased [Unknown]
